FAERS Safety Report 4960873-0 (Version None)
Quarter: 2006Q1

REPORT INFORMATION
  Report Type: 
  Country: None (occurrence: None)
  Receive Date: 20060328
  Receipt Date: 20060314
  Transmission Date: 20060701
  Serious: Yes (Hospitalization)
  Sender: FDA-Public Use
  Company Number: 2006002809

PATIENT
  Age: 91 Year
  Sex: Female

DRUGS (8)
  1. CELECOXIB ( CELECOXIB) [Suspect]
     Indication: BACK PAIN
     Dosage: 400 MG (200 MG, 2 IN 1 D)
     Dates: start: 20030924, end: 20031027
  2. AMIODARONE [Concomitant]
  3. KARDEGIC (ACETYLSALICYLATE LYSINE) [Concomitant]
  4. TAHOR (ATORVASTATIN) [Concomitant]
  5. CO-BETALOC (HYDROCHLOROTHIAZIDE, METOPROLOL TARTRATE) [Concomitant]
  6. LEXOMIL (BROMAZEPAM) [Concomitant]
  7. VASTAREL (TRIMETAZIDINE HYDROCHLORIDE) [Concomitant]
  8. LOPRESSOR [Concomitant]

REACTIONS (2)
  - ALANINE AMINOTRANSFERASE INCREASED [None]
  - COLITIS [None]
